FAERS Safety Report 5915102-8 (Version None)
Quarter: 2008Q4

REPORT INFORMATION
  Report Type: 
  Country: None (occurrence: None)
  Receive Date: 20081010
  Receipt Date: 20081007
  Transmission Date: 20090506
  Serious: Yes (Hospitalization)
  Sender: FDA-Public Use
  Company Number: B0535103A

PATIENT
  Age: 83 Year
  Sex: Female

DRUGS (4)
  1. ARIXTRA [Suspect]
     Indication: THROMBOSIS PROPHYLAXIS
     Dosage: 2.5MG PER DAY
     Route: 058
     Dates: start: 20080720, end: 20080729
  2. CEFAMEZIN [Concomitant]
     Indication: INFECTION PROPHYLAXIS
     Dosage: 2G PER DAY
     Dates: start: 20080716, end: 20080719
  3. FENTANYL [Concomitant]
     Indication: PAIN
     Route: 042
     Dates: start: 20080716, end: 20080718
  4. DROPERIDOL [Concomitant]
     Indication: PAIN
     Route: 042
     Dates: start: 20080716, end: 20080718

REACTIONS (11)
  - C-REACTIVE PROTEIN INCREASED [None]
  - CONJUNCTIVITIS [None]
  - EOSINOPHIL COUNT ABNORMAL [None]
  - ERYTHEMA [None]
  - EXCORIATION [None]
  - EYE DISCHARGE [None]
  - LIP PAIN [None]
  - MOUTH ULCERATION [None]
  - OCULOMUCOCUTANEOUS SYNDROME [None]
  - PYREXIA [None]
  - RASH PAPULAR [None]
